FAERS Safety Report 6244430-4 (Version None)
Quarter: 2009Q2

REPORT INFORMATION
  Report Type: 
  Country: None (occurrence: None)
  Receive Date: 20090623
  Receipt Date: 20090616
  Transmission Date: 20091009
  Serious: Yes (Hospitalization)
  Sender: FDA-Public Use
  Company Number: 2009JP003627

PATIENT
  Age: 78 Year
  Sex: Male

DRUGS (1)
  1. VESICARE [Suspect]
     Indication: HYPERTONIC BLADDER
     Dosage: 5 MG, D, ORAL
     Route: 048
     Dates: start: 20081030, end: 20090608

REACTIONS (1)
  - ATRIOVENTRICULAR BLOCK SECOND DEGREE [None]
